FAERS Safety Report 22160364 (Version 1)
Quarter: 2023Q1

REPORT INFORMATION
  Report Type: Spontaneous
  Country: CN (occurrence: CN)
  Receive Date: 20230331
  Receipt Date: 20230331
  Transmission Date: 20230418
  Serious: Yes (Other)
  Sender: FDA-Public Use
  Company Number: CN-002147023-NVSC2023CN071702

PATIENT
  Age: 56 Year
  Sex: Male
  Weight: 62 kg

DRUGS (12)
  1. ENTRESTO [Suspect]
     Active Substance: SACUBITRIL\VALSARTAN
     Indication: Cardiac failure
     Dosage: 50 MG, QD
     Route: 048
     Dates: start: 20230221, end: 20230223
  2. ENTRESTO [Suspect]
     Active Substance: SACUBITRIL\VALSARTAN
     Dosage: 12.5 MG, QD
     Route: 048
     Dates: start: 20230223, end: 20230305
  3. RIVAROXABAN [Suspect]
     Active Substance: RIVAROXABAN
     Indication: Atrial fibrillation
     Dosage: 15 MG, QD
     Route: 048
     Dates: start: 20230221, end: 20230310
  4. DIGOXIN [Suspect]
     Active Substance: DIGOXIN
     Indication: Atrial fibrillation
     Dosage: 0.125 MG, BID
     Route: 048
     Dates: start: 20230224, end: 20230310
  5. METHOXYPHENAMINE [Suspect]
     Active Substance: METHOXYPHENAMINE
     Indication: Cough
     Dosage: 1 DOSAGE FORM, TID
     Route: 048
     Dates: start: 20230224, end: 20230228
  6. OLANZAPINE [Suspect]
     Active Substance: OLANZAPINE
     Indication: Sleep disorder
     Dosage: 5 MG, QD
     Route: 048
     Dates: start: 20230221, end: 20230310
  7. PANTOPRAZOLE SODIUM [Suspect]
     Active Substance: PANTOPRAZOLE SODIUM
     Indication: Abdominal discomfort
     Dosage: 40 MG, QD
     Route: 048
     Dates: start: 20230221, end: 20230310
  8. METOPROLOL SUCCINATE [Suspect]
     Active Substance: METOPROLOL SUCCINATE
     Indication: Cardiac failure
     Dosage: 237.5 MG, QD, (142.5MG IN THE MORNING, 95MG IN THE EVENING)
     Route: 048
     Dates: start: 20230221, end: 20230223
  9. METOPROLOL SUCCINATE [Suspect]
     Active Substance: METOPROLOL SUCCINATE
     Dosage: 95 MG, QD
     Route: 048
     Dates: start: 20230223, end: 20230305
  10. AMBROXOL HYDROCHLORIDE [Suspect]
     Active Substance: AMBROXOL HYDROCHLORIDE
     Indication: Cough
     Dosage: 30 MG, BID
     Route: 048
     Dates: start: 20230224, end: 20230228
  11. AMIODARONE HYDROCHLORIDE [Suspect]
     Active Substance: AMIODARONE HYDROCHLORIDE
     Indication: Atrial fibrillation
     Dosage: 0.2 G, QD
     Route: 048
     Dates: start: 20230221, end: 20230228
  12. DAPAGLIFLOZIN [Suspect]
     Active Substance: DAPAGLIFLOZIN
     Indication: Cardiac failure
     Dosage: 10 MG, QD
     Route: 048
     Dates: start: 20230221, end: 20230310

REACTIONS (3)
  - Liver injury [Recovering/Resolving]
  - Underdose [Unknown]
  - Inappropriate schedule of product administration [Unknown]

NARRATIVE: CASE EVENT DATE: 20230228
